FAERS Safety Report 8955393 (Version 1)
Quarter: 2012Q4

REPORT INFORMATION
  Report Type: 
  Country: US (occurrence: US)
  Receive Date: 20121210
  Receipt Date: 20121210
  Transmission Date: 20130627
  Serious: Yes (Other)
  Sender: FDA-Public Use
  Company Number: US-PFIZER INC-2012309792

PATIENT
  Age: 63 Year
  Sex: Female
  Weight: 81.63 kg

DRUGS (3)
  1. LYRICA [Suspect]
     Indication: EAR DISORDER
     Dosage: 40 mg, 3x/day
     Dates: start: 201205, end: 2012
  2. LYRICA [Suspect]
     Indication: JAW DISORDER
     Dosage: 40 mg, daily
     Dates: start: 2012, end: 201208
  3. METFORMIN HCL [Suspect]
     Indication: DIABETES
     Dosage: 1000 mg, 2x/day

REACTIONS (5)
  - Syncope [Recovered/Resolved]
  - Incorrect dose administered [Unknown]
  - Visual impairment [Recovered/Resolved]
  - Dysarthria [Recovered/Resolved]
  - Blood glucose increased [Unknown]
